FAERS Safety Report 14438101 (Version 1)
Quarter: 2018Q1

REPORT INFORMATION
  Report Type: Spontaneous
  Country: GB (occurrence: GB)
  Receive Date: 20180125
  Receipt Date: 20180125
  Transmission Date: 20180509
  Serious: Yes (Death, Life-Threatening, Hospitalization, Disabling)
  Sender: FDA-Public Use
  Company Number: PHHY2018GB008420

PATIENT
  Age: 21 Year
  Sex: Female
  Weight: 55.1 kg

DRUGS (1)
  1. DABRAFENIB [Suspect]
     Active Substance: DABRAFENIB
     Indication: FIBROSARCOMA
     Dosage: 300 MG, UNK
     Route: 048
     Dates: start: 20160407

REACTIONS (7)
  - Brain death [Fatal]
  - Mydriasis [Unknown]
  - Metastases to lung [Unknown]
  - Pupil fixed [Unknown]
  - Generalised tonic-clonic seizure [Recovered/Resolved]
  - Fibrosarcoma metastatic [Fatal]
  - Brain herniation [Fatal]

NARRATIVE: CASE EVENT DATE: 20180115
